FAERS Safety Report 20611887 (Version 1)
Quarter: 2022Q1

REPORT INFORMATION
  Report Type: Spontaneous
  Country: US (occurrence: US)
  Receive Date: 20220318
  Receipt Date: 20220318
  Transmission Date: 20220423
  Serious: No
  Sender: FDA-Public Use
  Company Number: US-009507513-2203USA005475

PATIENT
  Age: 72 Year
  Sex: Female

DRUGS (3)
  1. KEYTRUDA [Suspect]
     Active Substance: PEMBROLIZUMAB
     Dosage: UNK
  2. LENVATINIB MESYLATE [Suspect]
     Active Substance: LENVATINIB MESYLATE
     Indication: Endometrial cancer
     Dosage: 18 MG DAILY (ALSO REPORTED AS OFF LABEL STARING DOSE/MANUFACTURER RECOMMENDATION: 20 MG)
     Route: 048
     Dates: start: 20220114
  3. LENVATINIB MESYLATE [Suspect]
     Active Substance: LENVATINIB MESYLATE
     Dosage: 18 MG DAILY
     Route: 048
     Dates: start: 20220211

REACTIONS (3)
  - Arthralgia [Recovering/Resolving]
  - Dysphonia [Recovered/Resolved]
  - Troponin increased [Recovering/Resolving]

NARRATIVE: CASE EVENT DATE: 20220101
